FAERS Safety Report 9135082 (Version 2)
Quarter: 2013Q2

REPORT INFORMATION
  Report Type: Spontaneous
  Country: US (occurrence: US)
  Receive Date: 20130304
  Receipt Date: 20130401
  Transmission Date: 20140414
  Serious: No
  Sender: FDA-Public Use
  Company Number: US-009507513-1303USA000597

PATIENT
  Age: 37 Year
  Sex: Male
  Weight: 84.81 kg

DRUGS (5)
  1. VICTRELIS [Suspect]
     Dosage: 800 MG, TID, 4 CAPSULES (800 MG) THRICE DAILY WITH FOOD
     Route: 048
  2. REBETOL [Suspect]
     Route: 048
  3. PEG-INTRON [Suspect]
     Dosage: REDIPEN, 4 SYRINGES
     Route: 058
  4. ACETAMINOFEN [Concomitant]
     Route: 048
  5. WELLBUTRIN TABLETS [Concomitant]
     Route: 048

REACTIONS (8)
  - Mood altered [Unknown]
  - Fatigue [Unknown]
  - Malaise [Unknown]
  - Vomiting [Unknown]
  - Dysgeusia [Unknown]
  - Platelet count decreased [Unknown]
  - Dyspepsia [Unknown]
  - Headache [Unknown]
